FAERS Safety Report 8922962 (Version 1)
Quarter: 2012Q4

REPORT INFORMATION
  Report Type: 
  Country: JP (occurrence: JP)
  Receive Date: 20121123
  Receipt Date: 20121123
  Transmission Date: 20130627
  Serious: Yes (Hospitalization)
  Sender: FDA-Public Use
  Company Number: JP-009507513-1211JPN009399

PATIENT
  Sex: Male

DRUGS (2)
  1. DIAZOXIDE [Suspect]
     Indication: HYPOGLYCAEMIA
     Dosage: 10 mg/kg, qd, divided dose frequency unknown
     Route: 048
  2. LEVOTHYROXINE SODIUM [Concomitant]
     Indication: HYPOTHYROIDISM
     Dosage: formulation:POR daily dosage unknown
     Route: 048

REACTIONS (3)
  - Circulatory collapse [Recovered/Resolved]
  - Oliguria [None]
  - Hyponatraemia [None]
